FAERS Safety Report 7127172-2 (Version None)
Quarter: 2010Q4

REPORT INFORMATION
  Report Type: 
  Country: None (occurrence: None)
  Receive Date: 20101129
  Receipt Date: 20100401
  Transmission Date: 20110411
  Serious: No
  Sender: FDA-Public Use
  Company Number: US-PFIZER INC-2010042533

PATIENT
  Sex: Male
  Weight: 63.492 kg

DRUGS (3)
  1. VIAGRA [Suspect]
     Indication: ERECTILE DYSFUNCTION
     Dosage: 50 MG, UNK
     Route: 048
     Dates: start: 20100331
  2. VIAGRA [Suspect]
     Dosage: TWO TIMES
     Dates: start: 20100401
  3. LEVOXYL [Concomitant]
     Indication: HYPOTHYROIDISM
     Dosage: UNK

REACTIONS (1)
  - DRUG INEFFECTIVE [None]
